FAERS Safety Report 5801542-4 (Version None)
Quarter: 2008Q3

REPORT INFORMATION
  Report Type: 
  Country: None (occurrence: None)
  Receive Date: 20080707
  Receipt Date: 20080627
  Transmission Date: 20090109
  Serious: Yes (Other)
  Sender: FDA-Public Use
  Company Number: US-JNJFOC-20080700055

PATIENT
  Sex: Female
  Weight: 80.74 kg

DRUGS (4)
  1. RISPERDAL CONSTA [Suspect]
     Indication: SCHIZOPHRENIA
     Route: 030
  2. RISPERDAL [Suspect]
     Indication: SCHIZOPHRENIA
     Route: 048
  3. LEXAPRO [Concomitant]
     Indication: DEPRESSION
     Route: 065
  4. SEROQUEL [Concomitant]
     Indication: SOMNOLENCE
     Route: 065

REACTIONS (2)
  - DRUG DOSE OMISSION [None]
  - HALLUCINATION [None]
